FAERS Safety Report 5737584-7 (Version None)
Quarter: 2008Q2

REPORT INFORMATION
  Report Type: 
  Country: None (occurrence: None)
  Receive Date: 20080514
  Receipt Date: 20080327
  Transmission Date: 20081010
  Serious: No
  Sender: FDA-Public Use
  Company Number: US-ABBOTT-08P-163-0444981-00

PATIENT
  Sex: Male

DRUGS (3)
  1. ZEMPLAR [Suspect]
     Indication: DIALYSIS
     Dosage: MONDAY-WEDNESDAY-FRIDAY
     Route: 042
     Dates: start: 20050101, end: 20080328
  2. ZEMPLAR [Suspect]
  3. DARBEPOETIN ALFA [Concomitant]
     Indication: ANAEMIA
     Route: 042

REACTIONS (1)
  - URTICARIA [None]
